FAERS Safety Report 17009427 (Version 1)
Quarter: 2019Q4

REPORT INFORMATION
  Report Type: Spontaneous
  Country: US (occurrence: US)
  Receive Date: 20191108
  Receipt Date: 20191108
  Transmission Date: 20200122
  Serious: Yes (Hospitalization)
  Sender: FDA-Public Use
  Company Number: US-APOTEX-2019AP024518

PATIENT
  Age: 46 Year
  Sex: Female

DRUGS (3)
  1. GLIMEPIRIDE. [Suspect]
     Active Substance: GLIMEPIRIDE
     Indication: PRODUCT USED FOR UNKNOWN INDICATION
     Dosage: 120 DF, UNK
     Route: 065
  2. LURASIDONE [Suspect]
     Active Substance: LURASIDONE
     Indication: PRODUCT USED FOR UNKNOWN INDICATION
     Dosage: UNK, LESS THAN 30 TABLETS COMBINED OF LURASIDONE 80MG AND DIVALPROEX SODIUM 250MG
     Route: 065
  3. DIVALPROEX SODIUM. [Suspect]
     Active Substance: DIVALPROEX SODIUM
     Indication: PRODUCT USED FOR UNKNOWN INDICATION
     Dosage: UNK, LESS THAN 30 TABLETS COMBINED OF LURASIDONE 80MG AND DIVALPROEX SODIUM 250MG
     Route: 065

REACTIONS (1)
  - Intentional overdose [Unknown]
